FAERS Safety Report 8573814-4 (Version None)
Quarter: 2012Q3

REPORT INFORMATION
  Report Type: 
  Country: None (occurrence: None)
  Receive Date: 20120806
  Receipt Date: 20110727
  Transmission Date: 20120928
  Serious: No
  Sender: FDA-Public Use
  Company Number: US-GLAXOSMITHKLINE-A0938537A

PATIENT
  Age: 79 Year
  Sex: Female

DRUGS (5)
  1. FLUTICASONE PROPIONATE [Suspect]
     Indication: ASTHMA
     Dosage: 2PUFF TWICE PER DAY
     Route: 055
     Dates: start: 20110718, end: 20110720
  2. SINGULAIR [Concomitant]
  3. FLOVENT [Concomitant]
  4. VENTOLIN [Concomitant]
  5. LOSARTAN POTASSIUM [Concomitant]

REACTIONS (3)
  - FEELING JITTERY [None]
  - PSYCHOMOTOR HYPERACTIVITY [None]
  - PALPITATIONS [None]
